FAERS Safety Report 7091664-5 (Version None)
Quarter: 2010Q4

REPORT INFORMATION
  Report Type: 
  Country: None (occurrence: None)
  Receive Date: 20101109
  Receipt Date: 20090108
  Transmission Date: 20110411
  Serious: No
  Sender: FDA-Public Use
  Company Number: US-KINGPHARMUSA00001-K200900021

PATIENT
  Age: 62 Year
  Sex: Female

DRUGS (2)
  1. EPIPEN [Suspect]
     Dosage: 0.3 MG
     Route: 030
     Dates: start: 20090108, end: 20090108
  2. EPIPEN [Suspect]
     Dosage: 0.3 MG, SINGLE
     Route: 030
     Dates: start: 20090108, end: 20090108

REACTIONS (2)
  - DRUG INEFFECTIVE [None]
  - NONSPECIFIC REACTION [None]
